FAERS Safety Report 17014453 (Version 2)
Quarter: 2019Q4

REPORT INFORMATION
  Report Type: Report from Study
  Country: US (occurrence: US)
  Receive Date: 20191111
  Receipt Date: 20191129
  Transmission Date: 20200122
  Serious: Yes (Death, Hospitalization, Other)
  Sender: FDA-Public Use
  Company Number: US-ASTRAZENECA-2019SF59096

PATIENT
  Age: 33451 Day
  Sex: Female
  Weight: 50.3 kg

DRUGS (11)
  1. FERGON [Concomitant]
     Active Substance: FERROUS GLUCONATE
     Dosage: TAKE 324 MG BY MOUTH 3 (THREE) TIMES A DAY WITH MEALS.
  2. PRILOSEC [Concomitant]
     Active Substance: OMEPRAZOLE MAGNESIUM
     Dosage: ONE CAPSULE BY MOUTH EVERY DAY BEFORE MEAL
  3. DECADRON [Concomitant]
     Active Substance: DEXAMETHASONE
     Dosage: TAKE ONE TABLET BY MOUTH EVERY MORNING WITH BREAKFAST
  4. TAGRISSO [Suspect]
     Active Substance: OSIMERTINIB
     Indication: NON-SMALL CELL LUNG CANCER METASTATIC
     Route: 048
     Dates: start: 20190227, end: 20190905
  5. XANAX [Concomitant]
     Active Substance: ALPRAZOLAM
     Dosage: TAKE 0.5 MG BY MOUTH 3 (THREE) TIMES A DAY AS NEEDED FOR SLEEP.
  6. VITAMIN B12 [Concomitant]
     Active Substance: CYANOCOBALAMIN
     Dosage: 1000 MCG/ML INJECT INTO THE MUSCLE. PATIENT DOES SELF INJECTIONS AT HOME
  7. LOPRESSOR [Concomitant]
     Active Substance: METOPROLOL TARTRATE
     Dosage: TAKE 12.5 MG BY MOUTH TWICE A DAY
  8. ELIQUIS [Concomitant]
     Active Substance: APIXABAN
     Dosage: TAKE ONE TABLET BY MOUTH EVERY 12 HOURS
  9. VITAMIN D [Concomitant]
     Active Substance: VITAMIN D NOS
     Dosage: 1000 UNITS, TAKE 1,000 UNITS BY MOUTH DAILY.
  10. TAGRISSO [Suspect]
     Active Substance: OSIMERTINIB
     Indication: EGFR GENE MUTATION
     Route: 048
     Dates: start: 20190227, end: 20190905
  11. LASIX [Concomitant]
     Active Substance: FUROSEMIDE
     Dosage: TAKE I TABLET (20 MG TOTAL) BY MOUTH 2 (TWO) TIMES A DAY.

REACTIONS (7)
  - Colon cancer [Unknown]
  - Anaemia [Not Recovered/Not Resolved]
  - Malignant pleural effusion [Recovered/Resolved]
  - Breast cancer [Unknown]
  - Renal failure [Unknown]
  - Asthenia [Recovered/Resolved]
  - Malignant neoplasm progression [Fatal]

NARRATIVE: CASE EVENT DATE: 20190531
